FAERS Safety Report 19844099 (Version 2)
Quarter: 2021Q4

REPORT INFORMATION
  Report Type: Report from Study
  Country: US (occurrence: US)
  Receive Date: 20210916
  Receipt Date: 20211111
  Transmission Date: 20220303
  Serious: Yes (Other)
  Sender: FDA-Public Use
  Company Number: US-MYLANLABS-2021M1061810

PATIENT
  Age: 39 Year
  Sex: Female
  Weight: 95 kg

DRUGS (14)
  1. CLOZAPINE [Suspect]
     Active Substance: CLOZAPINE
     Indication: Psychotic disorder
     Dosage: 350 MILLIGRAM, HS
     Route: 048
     Dates: start: 202107
  2. CLOZAPINE [Suspect]
     Active Substance: CLOZAPINE
     Indication: Affective disorder
  3. THORAZINE                          /00011901/ [Concomitant]
     Dosage: 100 MILLIGRAM, QD
  4. THORAZINE                          /00011901/ [Concomitant]
     Dosage: 50 MILLIGRAM, BID
     Dates: end: 20210913
  5. VALPROIC ACID [Concomitant]
     Active Substance: VALPROIC ACID
     Dosage: 200 MILLIGRAM, BID
  6. GLYCOPYRROLATE                     /00196201/ [Concomitant]
     Dosage: 1 MILLIGRAM, BID
  7. MIRALAX [Concomitant]
     Active Substance: POLYETHYLENE GLYCOL 3350
     Dosage: UNK, PM
  8. ROBAXIN [Concomitant]
     Active Substance: METHOCARBAMOL
     Dosage: 1000 MILLIGRAM, BID
  9. SYNTHROID [Concomitant]
     Active Substance: LEVOTHYROXINE SODIUM
     Dosage: 75 MILLIGRAM, QD
  10. KEPPRA [Concomitant]
     Active Substance: LEVETIRACETAM
     Dosage: 1000 MILLIGRAM, BID
  11. GABAPENTIN [Concomitant]
     Active Substance: GABAPENTIN
     Dosage: 300 MILLIGRAM, BID
  12. VENTOLIN HFA [Concomitant]
     Active Substance: ALBUTEROL SULFATE
     Dosage: UNK
  13. TYLENOL                            /00020001/ [Concomitant]
  14. VITAMIN D                          /00107901/ [Concomitant]
     Dosage: UNK UNK, QD

REACTIONS (2)
  - Neutropenia [Recovered/Resolved]
  - Off label use [Unknown]

NARRATIVE: CASE EVENT DATE: 20210701
